APPROVED DRUG PRODUCT: NORETHINDRONE ACETATE AND ETHINYL ESTRADIOL AND FERROUS FUMARATE
Active Ingredient: ETHINYL ESTRADIOL; NORETHINDRONE ACETATE
Strength: 0.02MG;1MG
Dosage Form/Route: TABLET;ORAL
Application: A206120 | Product #001
Applicant: XIROMED LLC
Approved: Sep 12, 2017 | RLD: No | RS: No | Type: DISCN